FAERS Safety Report 16371846 (Version 3)
Quarter: 2019Q3

REPORT INFORMATION
  Report Type: Spontaneous
  Country: US (occurrence: US)
  Receive Date: 20190530
  Receipt Date: 20190912
  Transmission Date: 20191004
  Serious: Yes (Hospitalization, Other)
  Sender: FDA-Public Use
  Company Number: US-CATALYST PHARMACEUTICALS, INC-2019CAT00156

PATIENT
  Age: 56 Year
  Sex: Male
  Weight: 89.8 kg

DRUGS (19)
  1. LOSARTAN. [Suspect]
     Active Substance: LOSARTAN
     Indication: BLOOD PRESSURE ABNORMAL
     Dosage: 50 MG, 1X/DAY
  2. LEVOTHYROXINE. [Concomitant]
     Active Substance: LEVOTHYROXINE
     Dosage: 150 MG, 1X/DAY
  3. FIRDAPSE [Suspect]
     Active Substance: AMIFAMPRIDINE
     Indication: MYASTHENIC SYNDROME
     Dosage: 5 MG, 3X/DAY
     Route: 048
     Dates: start: 2019, end: 20190509
  4. FIRDAPSE [Suspect]
     Active Substance: AMIFAMPRIDINE
     Dosage: 10 MG, 3X/DAY
     Route: 048
     Dates: start: 2019, end: 20190820
  5. PLAVIX [Concomitant]
     Active Substance: CLOPIDOGREL BISULFATE
  6. FIRDAPSE [Suspect]
     Active Substance: AMIFAMPRIDINE
     Dosage: 5 MG, 3X/DAY
     Route: 048
     Dates: start: 20190513, end: 2019
  7. VITAMIN B12 [Concomitant]
     Active Substance: CYANOCOBALAMIN
     Dosage: 2500 ?G, 1X/WEEK
  8. ASPIRIN. [Concomitant]
     Active Substance: ASPIRIN
     Dosage: 325 MG, 1X/DAY
  9. VITAMIN D [Concomitant]
     Active Substance: VITAMIN D NOS
     Dosage: 2000 U, 1X/WEEK
  10. FIRDAPSE [Suspect]
     Active Substance: AMIFAMPRIDINE
     Dosage: 5 MG, 3X/DAY
     Route: 048
     Dates: start: 20190829
  11. FIRDAPSE [Suspect]
     Active Substance: AMIFAMPRIDINE
     Dosage: 5 MG, 3X/DAY
     Route: 048
     Dates: start: 20190821, end: 20190826
  12. PEPCID [Concomitant]
     Active Substance: FAMOTIDINE
     Dosage: 40 MG, 1X/DAY
  13. FIRDAPSE [Suspect]
     Active Substance: AMIFAMPRIDINE
     Dosage: 10 MG, 3X/DAY
     Route: 048
     Dates: start: 20190827, end: 20190928
  14. CALCIUM [Suspect]
     Active Substance: CALCIUM
     Indication: THYROID CANCER
     Dosage: 600 MG, 2X/DAY
  15. METOPROLOL. [Concomitant]
     Active Substance: METOPROLOL
     Dosage: 25 MG, 2X/DAY
  16. GABAPENTIN. [Concomitant]
     Active Substance: GABAPENTIN
     Dosage: 400 MG, 1X/DAY
  17. CALCIUM [Suspect]
     Active Substance: CALCIUM
     Indication: PARATHYROID DISORDER
  18. OMEGA 3 [Concomitant]
     Active Substance: OMEGA-3 FATTY ACIDS
     Dosage: 1000 U, 1X/DAY
  19. OXYCODONE [Concomitant]
     Active Substance: OXYCODONE

REACTIONS (16)
  - Decreased appetite [Recovering/Resolving]
  - Transient ischaemic attack [Recovering/Resolving]
  - Road traffic accident [Recovered/Resolved]
  - Asthenia [Not Recovered/Not Resolved]
  - Intestinal obstruction [Recovered/Resolved]
  - Nephrolithiasis [Recovered/Resolved]
  - Fatigue [Recovering/Resolving]
  - Dizziness [Not Recovered/Not Resolved]
  - Dyspnoea [Recovering/Resolving]
  - Paraesthesia [Unknown]
  - Myasthenic syndrome [Recovering/Resolving]
  - Hyporeflexia [Not Recovered/Not Resolved]
  - Weight decreased [Recovering/Resolving]
  - Malaise [Recovering/Resolving]
  - Lung neoplasm malignant [Unknown]
  - Hypoaesthesia oral [Recovering/Resolving]

NARRATIVE: CASE EVENT DATE: 2019
